FAERS Safety Report 12352254 (Version 2)
Quarter: 2016Q2

REPORT INFORMATION
  Report Type: Spontaneous
  Country: US (occurrence: US)
  Receive Date: 20160510
  Receipt Date: 20160510
  Transmission Date: 20160815
  Serious: Yes (Other)
  Sender: FDA-Public Use
  Company Number: US-BAYER-2016-088887

PATIENT
  Age: 26 Year
  Sex: Female

DRUGS (2)
  1. MIRENA [Suspect]
     Active Substance: LEVONORGESTREL
     Indication: GENITAL HAEMORRHAGE
     Dosage: 20 MCG/24HR, CONT
     Route: 015
     Dates: start: 20160205
  2. MIRENA [Suspect]
     Active Substance: LEVONORGESTREL
     Indication: DYSMENORRHOEA

REACTIONS (4)
  - Off label use [None]
  - Device expulsion [None]
  - Genital haemorrhage [None]
  - Pain [None]

NARRATIVE: CASE EVENT DATE: 20160428
